FAERS Safety Report 19380072 (Version 1)
Quarter: 2021Q2

REPORT INFORMATION
  Report Type: Spontaneous
  Country: PT (occurrence: PT)
  Receive Date: 20210607
  Receipt Date: 20210607
  Transmission Date: 20210717
  Serious: Yes (Death)
  Sender: FDA-Public Use
  Company Number: PT-TEVA-2021-PT-1919826

PATIENT
  Age: 21 Year
  Sex: Male

DRUGS (8)
  1. VINBLASTINE [Concomitant]
     Active Substance: VINBLASTINE
     Indication: TESTICULAR EMBRYONAL CARCINOMA
     Dosage: AS PART OF VEIP REGIMEN FOR 4 COURSES
     Route: 065
  2. OXALIPLATIN. [Concomitant]
     Active Substance: OXALIPLATIN
     Indication: TESTICULAR EMBRYONAL CARCINOMA
     Dosage: AS PART OF GEMOX REGIMEN FOR 1 COURSE
     Route: 065
  3. BLEOMYCIN [Concomitant]
     Active Substance: BLEOMYCIN SULFATE
     Indication: TESTICULAR EMBRYONAL CARCINOMA
     Dosage: AS PART OF BEP REGIMEN FOR THREE COURSES
     Route: 065
  4. ETOPOSIDE. [Concomitant]
     Active Substance: ETOPOSIDE
     Indication: TESTICULAR EMBRYONAL CARCINOMA
     Dosage: AS PART OF BEP REGIMEN FOR 3 COURSES
     Route: 065
  5. GEMCITABINE. [Concomitant]
     Active Substance: GEMCITABINE
     Indication: TESTICULAR EMBRYONAL CARCINOMA
     Dosage: AS PART OF GEMOX REGIMEN FOR 1 COURSE
     Route: 065
  6. PACLITAXEL. [Concomitant]
     Active Substance: PACLITAXEL
     Indication: TESTICULAR EMBRYONAL CARCINOMA
     Dosage: AS PART OF TIP REGIMEN FOR 4 COURSES
     Route: 065
  7. CISPLATIN. [Suspect]
     Active Substance: CISPLATIN
     Indication: TESTICULAR EMBRYONAL CARCINOMA
     Dosage: ADMINISTERED AS A PART OF BEP REGIMEN FOR 3 COURSES, AND AS PART OF VEIP FOR 4 COURSES AND TIP RE...
     Route: 065
  8. IFOSFAMIDE. [Concomitant]
     Active Substance: IFOSFAMIDE
     Indication: TESTICULAR EMBRYONAL CARCINOMA
     Dosage: AS PART OF VEIP FOR 4 COURSES AND TIP REGIMENS FOR 4 COURSES
     Route: 065

REACTIONS (1)
  - Drug resistance [Fatal]
